FAERS Safety Report 4607670-3 (Version None)
Quarter: 2005Q1

REPORT INFORMATION
  Report Type: 
  Country: None (occurrence: None)
  Receive Date: 20050309
  Receipt Date: 20050223
  Transmission Date: 20050727
  Serious: Yes (Disabling)
  Sender: FDA-Public Use
  Company Number: EWC041241791

PATIENT
  Age: 56 Year
  Sex: Female

DRUGS (1)
  1. EVISTA [Suspect]
     Indication: OSTEOPOROSIS
     Dosage: 60  MG DAY
     Dates: start: 20040801, end: 20050112

REACTIONS (5)
  - BLINDNESS UNILATERAL [None]
  - CONDITION AGGRAVATED [None]
  - HAEMORRHOIDS [None]
  - RETINAL VASCULAR THROMBOSIS [None]
  - SENSATION OF HEAVINESS [None]
